FAERS Safety Report 14563478 (Version 1)
Quarter: 2018Q1

REPORT INFORMATION
  Report Type: Report from Study
  Country: US (occurrence: US)
  Receive Date: 20180222
  Receipt Date: 20180222
  Transmission Date: 20180509
  Serious: Yes (Death, Hospitalization)
  Sender: FDA-Public Use
  Company Number: US-ASTRAZENECA-2017SE72500

PATIENT
  Sex: Female

DRUGS (19)
  1. METOPROLOL TARTRATE. [Suspect]
     Active Substance: METOPROLOL TARTRATE
     Route: 048
  2. GLUCOSAMINE + CHONDROITIN [Concomitant]
  3. CALCIUM CITRATE + D [Concomitant]
  4. NEXIUM [Suspect]
     Active Substance: ESOMEPRAZOLE MAGNESIUM
     Route: 048
  5. METOPROLOL SUCCINATE. [Suspect]
     Active Substance: METOPROLOL SUCCINATE
     Route: 048
  6. MAGNESIUM [Concomitant]
     Active Substance: MAGNESIUM
  7. VITAMIN D [Concomitant]
     Active Substance: CHOLECALCIFEROL
  8. HYDROXYCHLOROQUINE [Concomitant]
     Active Substance: HYDROXYCHLOROQUINE
  9. AMBIEN [Concomitant]
     Active Substance: ZOLPIDEM TARTRATE
  10. LASIX [Concomitant]
     Active Substance: FUROSEMIDE
  11. COENZYME Q10 [Concomitant]
     Active Substance: UBIDECARENONE
  12. CRANBERRY. [Concomitant]
     Active Substance: CRANBERRY
  13. CINNAMON. [Concomitant]
     Active Substance: CINNAMON
  14. ZOVIRAX [Concomitant]
     Active Substance: ACYCLOVIR
  15. TURMERIC [Concomitant]
     Active Substance: HERBALS\TURMERIC
  16. BIOTIN [Concomitant]
     Active Substance: BIOTIN
  17. ZINC. [Concomitant]
     Active Substance: ZINC
  18. TAGRISSO [Suspect]
     Active Substance: OSIMERTINIB
     Indication: LUNG NEOPLASM MALIGNANT
     Route: 048
     Dates: start: 201707
  19. AMITRIPTYLINE HYDROCHLORIDE. [Concomitant]
     Active Substance: AMITRIPTYLINE HYDROCHLORIDE

REACTIONS (16)
  - Neoplasm malignant [Fatal]
  - Abdominal pain upper [Unknown]
  - Drug dose omission [Unknown]
  - Intestinal obstruction [Fatal]
  - Diverticulitis [Unknown]
  - Lung neoplasm malignant [Fatal]
  - Gastrointestinal disorder [Unknown]
  - Visual impairment [Unknown]
  - Cardiac disorder [Fatal]
  - Diarrhoea [Unknown]
  - Decreased appetite [Unknown]
  - Migraine [Unknown]
  - Flatulence [Unknown]
  - Cardiac failure congestive [Fatal]
  - Constipation [Unknown]
  - Dysgeusia [Unknown]
